FAERS Safety Report 15417127 (Version 1)
Quarter: 2018Q3

REPORT INFORMATION
  Report Type: Spontaneous
  Country: ES (occurrence: ES)
  Receive Date: 20180924
  Receipt Date: 20180924
  Transmission Date: 20181010
  Serious: Yes (Other)
  Sender: FDA-Public Use
  Company Number: ES-AUROBINDO-AUR-APL-2018-046993

PATIENT
  Age: 60 Year
  Sex: Female
  Weight: 58 kg

DRUGS (7)
  1. PARACETAMOL [Concomitant]
     Active Substance: ACETAMINOPHEN
     Indication: PRODUCT USED FOR UNKNOWN INDICATION
     Dosage: UNK
     Route: 048
     Dates: start: 201808
  2. IPRATROPIUM BROMIDE. [Concomitant]
     Active Substance: IPRATROPIUM BROMIDE
     Indication: PRODUCT USED FOR UNKNOWN INDICATION
     Dosage: UNK, 500MCG (ADD 2ML OF SALINE), NEBULIZATION. IN EMERGENCIES NOW. IN HOSPITALIZATION EVERY 6 HOURS
     Route: 055
     Dates: start: 20180822
  3. IBUPROFEN. [Concomitant]
     Active Substance: IBUPROFEN
     Indication: PRODUCT USED FOR UNKNOWN INDICATION
     Dosage: UNK
     Route: 048
     Dates: start: 201808
  4. LEVOFLOXACIN SOLUTION FOR INFUSION [Suspect]
     Active Substance: LEVOFLOXACIN
     Dosage: 500 MILLIGRAM, UNK
     Route: 042
     Dates: start: 20180822, end: 20180822
  5. SINTROM [Concomitant]
     Active Substance: ACENOCOUMAROL
     Indication: DEEP VEIN THROMBOSIS
     Dosage: UNK, ACCORDING TO GUIDELINE
     Route: 048
  6. HIDROFEROL [Concomitant]
     Active Substance: CALCIFEDIOL
     Indication: VITAMIN D DEFICIENCY
     Dosage: UNK, 1 MONTH
     Route: 048
  7. NOLOTIL                            /06276702/ [Concomitant]
     Active Substance: METAMIZOLE MAGNESIUM
     Indication: PRODUCT USED FOR UNKNOWN INDICATION
     Dosage: 2G (IN 250 SSF), IN EMERGENCIES NOW; IN TOTAL
     Route: 042
     Dates: start: 20180822, end: 20180822

REACTIONS (2)
  - Pruritus [Recovered/Resolved]
  - Flushing [Recovered/Resolved]

NARRATIVE: CASE EVENT DATE: 20180822
